FAERS Safety Report 8425668-4 (Version None)
Quarter: 2012Q2

REPORT INFORMATION
  Report Type: 
  Country: None (occurrence: None)
  Receive Date: 20120601
  Receipt Date: 20120521
  Transmission Date: 20120825
  Serious: Yes (Congenital Anomaly)
  Sender: FDA-Public Use
  Company Number: DSA_57463_2012

PATIENT
  Sex: Male
  Weight: 3 kg

DRUGS (1)
  1. BUPROPION HYDROCHLORIDE [Suspect]
     Indication: DEPRESSION
     Dosage: (300 MG QD TRANSPLACENTAL)
     Route: 064
     Dates: start: 20110601, end: 20110801

REACTIONS (3)
  - HYDROCELE [None]
  - CEPHALHAEMATOMA [None]
  - MATERNAL DRUGS AFFECTING FOETUS [None]
